FAERS Safety Report 9858306 (Version 1)
Quarter: 2014Q1

REPORT INFORMATION
  Report Type: Spontaneous
  Country: US (occurrence: US)
  Receive Date: 20140131
  Receipt Date: 20140131
  Transmission Date: 20141002
  Serious: Yes (Death)
  Sender: FDA-Public Use
  Company Number: US-BEH-2014040451

PATIENT
  Age: 65 Year
  Sex: Female

DRUGS (1)
  1. IVIG [Suspect]
     Indication: HISTIOCYTOSIS HAEMATOPHAGIC
     Route: 042

REACTIONS (4)
  - Arterial thrombosis [Unknown]
  - Intestinal ischaemia [Unknown]
  - Lactic acidosis [Unknown]
  - Drug ineffective for unapproved indication [Fatal]
